FAERS Safety Report 20785478 (Version 1)
Quarter: 2022Q2

REPORT INFORMATION
  Report Type: Spontaneous
  Country: None (occurrence: US)
  Receive Date: 20220504
  Receipt Date: 20220504
  Transmission Date: 20220721
  Serious: No
  Sender: FDA-Public Use
  Company Number: US-International Medication Systems, Limited-2128467

PATIENT
  Age: 87 Year
  Sex: Male

DRUGS (1)
  1. LIDOCAINE HYDROCHLORIDE [Suspect]
     Active Substance: LIDOCAINE HYDROCHLORIDE
     Indication: Postoperative care
     Route: 066

REACTIONS (2)
  - Urinary retention [Unknown]
  - Morganella infection [None]

NARRATIVE: CASE EVENT DATE: 20220121
